FAERS Safety Report 4309191-4 (Version None)
Quarter: 2004Q1

REPORT INFORMATION
  Report Type: 
  Country: None (occurrence: None)
  Receive Date: 20040301
  Receipt Date: 20031219
  Transmission Date: 20041129
  Serious: No
  Sender: FDA-Public Use
  Company Number: F01200301545

PATIENT
  Age: 54 Year
  Sex: Male

DRUGS (6)
  1. (OXALIPLATIN) - UNKNOWN- UNIT DOSE: UNKNOWN [Suspect]
     Indication: COLORECTAL CANCER
     Dosage: 193 MG Q2W; INTRAVENOUS NOS (UNKNOWN - TIME TO ONSET: 7 WEEKS 4 DAYS
     Route: 012
     Dates: start: 20030623, end: 20030623
  2. (OXALIPLATIN) - UNKNOWN- UNIT DOSE: UNKNOWN [Suspect]
     Indication: METASTASES TO LIVER
     Dosage: 193 MG Q2W; INTRAVENOUS NOS (UNKNOWN - TIME TO ONSET: 7 WEEKS 4 DAYS
     Route: 012
     Dates: start: 20030623, end: 20030623
  3. ONDANSETRON HCL [Concomitant]
  4. DEXAMETHASONE [Concomitant]
  5. LEUCOVORIN [Concomitant]
  6. FLUOROURACIL [Concomitant]

REACTIONS (1)
  - DIABETES MELLITUS [None]
